FAERS Safety Report 6178449-9 (Version None)
Quarter: 2009Q2

REPORT INFORMATION
  Report Type: 
  Country: None (occurrence: None)
  Receive Date: 20090430
  Receipt Date: 20090213
  Transmission Date: 20091009
  Serious: Yes (Hospitalization)
  Sender: FDA-Public Use
  Company Number: 233112

PATIENT
  Sex: Male

DRUGS (5)
  1. LEUCOVORIN CALCIUM [Suspect]
     Dosage: 100 MG/M2, 1 EVERY 2 WEEKS,
     Dates: start: 20080225
  2. FLUOROURACIL INJ [Suspect]
     Indication: GASTRIC CANCER
     Dosage: 600 MG/M2, INTRAVENOUS
     Route: 042
     Dates: start: 20080225
  3. FLUOROURACIL INJ [Suspect]
     Indication: OESOPHAGEAL ADENOCARCINOMA
     Dosage: 600 MG/M2, INTRAVENOUS
     Route: 042
     Dates: start: 20080225
  4. IRINOTECAN HCL [Suspect]
     Indication: GASTRIC CANCER
     Dosage: 180 MG/M2, 1 EVERY 2WEEKS, INHALATION
     Route: 055
     Dates: start: 20080225
  5. IRINOTECAN HCL [Suspect]
     Indication: OESOPHAGEAL ADENOCARCINOMA
     Dosage: 180 MG/M2, 1 EVERY 2WEEKS, INHALATION
     Route: 055
     Dates: start: 20080225

REACTIONS (1)
  - FEBRILE NEUTROPENIA [None]
